FAERS Safety Report 9450403 (Version 2)
Quarter: 2013Q4

REPORT INFORMATION
  Report Type: Spontaneous
  Country: GB (occurrence: None)
  Receive Date: 20130807
  Receipt Date: 20131129
  Transmission Date: 20140711
  Serious: Yes (Other)
  Sender: FDA-Public Use
  Company Number: AUR-APL-2013-06414

PATIENT
  Sex: Female

DRUGS (2)
  1. GABAPENTIN (GABAPENTIN) [Suspect]
     Indication: DIABETIC NEPHROPATHY
  2. INSULIN (INSULIN) [Concomitant]

REACTIONS (2)
  - Abortion induced [None]
  - Exposure during pregnancy [None]
